FAERS Safety Report 4477428-7 (Version None)
Quarter: 2004Q4

REPORT INFORMATION
  Report Type: 
  Country: None (occurrence: None)
  Receive Date: 20041013
  Receipt Date: 20040929
  Transmission Date: 20050328
  Serious: Yes (Life-Threatening, Hospitalization, Disabling)
  Sender: FDA-Public Use
  Company Number: CERZ-10645

PATIENT
  Age: 16 Month
  Sex: Male
  Weight: 8.25 kg

DRUGS (1)
  1. CEREZYME [Suspect]
     Indication: GAUCHER'S DISEASE
     Dosage: 495 UNITS Q2WKS IV
     Route: 042
     Dates: start: 20020924

REACTIONS (18)
  - BRONCHOPNEUMONIA [None]
  - CONGENITAL CYTOMEGALOVIRUS INFECTION [None]
  - CYTOMEGALOVIRUS INFECTION [None]
  - DISEASE RECURRENCE [None]
  - DRUG INEFFECTIVE [None]
  - FAILURE TO THRIVE [None]
  - HEPATITIS [None]
  - HEPATOSPLENOMEGALY [None]
  - HERPES SIMPLEX [None]
  - HERPES ZOSTER [None]
  - HYPERBILIRUBINAEMIA [None]
  - JAUNDICE NEONATAL [None]
  - LOWER RESPIRATORY TRACT INFECTION [None]
  - PLATELET COUNT DECREASED [None]
  - RESPIRATORY DISTRESS [None]
  - RUBELLA [None]
  - SYPHILIS [None]
  - TOXOPLASMOSIS [None]
